FAERS Safety Report 9911730 (Version 2)
Quarter: 2014Q1

REPORT INFORMATION
  Report Type: Spontaneous
  Country: US (occurrence: US)
  Receive Date: 20140219
  Receipt Date: 20140219
  Transmission Date: 20141002
  Serious: Yes (Disabling)
  Sender: FDA-Public Use
  Company Number: US-GE HEALTHCARE MEDICAL DIAGNOSTICS-OSCN-PR-0906S-0301

PATIENT
  Age: 31 Year
  Sex: Female

DRUGS (5)
  1. OMNISCAN [Suspect]
     Indication: ABDOMINAL PAIN
     Route: 042
     Dates: start: 20060208, end: 20060208
  2. OMNISCAN [Suspect]
     Indication: PAIN
     Route: 042
     Dates: start: 20060323, end: 20060323
  3. OMNISCAN [Suspect]
     Indication: INDURATION
     Dosage: UNSPECIFIED
     Route: 042
     Dates: start: 20061226, end: 20061226
  4. OMNISCAN [Suspect]
     Indication: SUDDEN HEARING LOSS
  5. GADOLINIUM (UNSPECIFIED) [Suspect]
     Indication: PRODUCT USED FOR UNKNOWN INDICATION
     Route: 042
     Dates: start: 20060228, end: 20060228

REACTIONS (1)
  - Nephrogenic systemic fibrosis [Not Recovered/Not Resolved]
